FAERS Safety Report 8523885-6 (Version None)
Quarter: 2012Q2

REPORT INFORMATION
  Report Type: 
  Country: None (occurrence: None)
  Receive Date: 20120406
  Receipt Date: 20100305
  Transmission Date: 20120825
  Serious: Yes (Life-Threatening, Hospitalization)
  Sender: FDA-Public Use
  Company Number: PHEH2010US02643

PATIENT
  Age: 73 Year
  Sex: Female
  Weight: 100 kg

DRUGS (18)
  1. POTASSIUM CHLORIDE [Concomitant]
  2. MAG (MAGNESIUM PIDOLATE) [Concomitant]
  3. SYSTANE (PROPYLENE GLYCOL/MACROGOL) (MACROGOL, PROPYLENE GLYCOL) [Concomitant]
  4. ZOVIRAX [Concomitant]
  5. TASIGNA [Suspect]
     Indication: ACUTE MYELOID LEUKAEMIA
     Dosage: 400 MG, BID, ORAL
     Route: 048
     Dates: start: 20100206, end: 20100210
  6. BUMEX [Concomitant]
  7. LEVOXYL [Concomitant]
  8. LOPRESSOR [Concomitant]
  9. COMPAZINE [Concomitant]
  10. COUMADIN [Concomitant]
  11. DARVOCET-N (DEXTROPROPOXYPHENE NAPSILATE, PARACETAMOL) [Concomitant]
  12. PROTONIX [Concomitant]
  13. GLEEVEC [Concomitant]
  14. REGLAN [Concomitant]
  15. SENNA (SENNA, SENNA ALEXANDRINA) [Concomitant]
  16. SOMA [Concomitant]
  17. DIOVAN [Concomitant]
  18. EVISTA [Concomitant]

REACTIONS (5)
  - DYSPNOEA [None]
  - CHEST PAIN [None]
  - URINARY TRACT INFECTION [None]
  - ATRIAL FIBRILLATION [None]
  - PYREXIA [None]
